FAERS Safety Report 13466498 (Version 1)
Quarter: 2017Q2

REPORT INFORMATION
  Report Type: Spontaneous
  Country: IT (occurrence: IT)
  Receive Date: 20170421
  Receipt Date: 20170421
  Transmission Date: 20170830
  Serious: Yes (Other)
  Sender: FDA-Public Use
  Company Number: IT-ELI_LILLY_AND_COMPANY-IT201704006384

PATIENT
  Age: 83 Year
  Sex: Male
  Weight: 94 kg

DRUGS (4)
  1. SOLDESAM [Concomitant]
     Active Substance: DEXAMETHASONE
     Indication: COLORECTAL CANCER METASTATIC
     Dosage: 4 MG, UNKNOWN
     Route: 042
     Dates: start: 20170213, end: 20170227
  2. TRIMETON [Concomitant]
     Active Substance: CHLORPHENIRAMINE MALEATE
     Indication: COLORECTAL CANCER METASTATIC
     Dosage: 10 MG, UNK
     Route: 042
     Dates: start: 20170213, end: 20170227
  3. ERBITUX [Suspect]
     Active Substance: CETUXIMAB
     Indication: COLORECTAL CANCER METASTATIC
     Dosage: 500 MG/M2, CYCLICAL
     Route: 042
     Dates: start: 20170213, end: 20170227
  4. ERBITUX [Suspect]
     Active Substance: CETUXIMAB
     Dosage: 250 MG/M2, CYCLICAL
     Route: 042
     Dates: start: 20170327

REACTIONS (1)
  - Skin toxicity [Recovering/Resolving]

NARRATIVE: CASE EVENT DATE: 20170227
